FAERS Safety Report 22211420 (Version 1)
Quarter: 2023Q2

REPORT INFORMATION
  Report Type: Spontaneous
  Country: US (occurrence: US)
  Receive Date: 20230414
  Receipt Date: 20230414
  Transmission Date: 20230721
  Serious: No
  Sender: FDA-Public Use
  Company Number: US-PFIZER INC-202300149935

PATIENT
  Age: 60 Year
  Sex: Female

DRUGS (7)
  1. XELJANZ [Suspect]
     Active Substance: TOFACITINIB CITRATE
     Dosage: 1 (5MG) TABLET IN THE MORNING AND AT BEDTIME
     Route: 048
     Dates: start: 202303
  2. UBRELVY [Concomitant]
     Active Substance: UBROGEPANT
  3. PREDNISONE [Concomitant]
     Active Substance: PREDNISONE
  4. MAGNESIUM [Concomitant]
     Active Substance: MAGNESIUM
  5. PFIZER-BIONTECH COVID-19 VACCINE [Concomitant]
     Active Substance: TOZINAMERAN
  6. FLUCELVAX QUAD [Concomitant]
  7. FOLIC ACID [Concomitant]
     Active Substance: FOLIC ACID

REACTIONS (1)
  - Pain [Recovering/Resolving]

NARRATIVE: CASE EVENT DATE: 20230401
